FAERS Safety Report 5814748-5 (Version None)
Quarter: 2008Q3

REPORT INFORMATION
  Report Type: 
  Country: None (occurrence: None)
  Receive Date: 20080718
  Receipt Date: 20080709
  Transmission Date: 20090109
  Serious: Yes (Other)
  Sender: FDA-Public Use
  Company Number: US-ROCHE-575020

PATIENT
  Age: 46 Year
  Sex: Male

DRUGS (3)
  1. VALIUM [Suspect]
     Indication: MUSCLE SPASMS
     Dosage: OTHER INDICATION: TENSION HEADACHE
     Route: 065
  2. ATIVAN [Concomitant]
  3. ALLEGRA [Concomitant]

REACTIONS (1)
  - ATRIAL FIBRILLATION [None]
